FAERS Safety Report 8373554-0 (Version None)
Quarter: 2012Q2

REPORT INFORMATION
  Report Type: 
  Country: None (occurrence: None)
  Receive Date: 20120521
  Receipt Date: 20120516
  Transmission Date: 20120825
  Serious: Yes (Other)
  Sender: FDA-Public Use
  Company Number: JP-PFIZER INC-2012118394

PATIENT
  Sex: Male

DRUGS (4)
  1. VANCOMYCIN [Concomitant]
     Dosage: 90 MG/KG
  2. LINEZOLID [Suspect]
     Dosage: 30 MG/KG, 1X/DAY
     Route: 048
  3. VANCOMYCIN [Concomitant]
     Indication: ENDOCARDITIS STAPHYLOCOCCAL
     Dosage: 30 MG/KG
  4. LINEZOLID [Suspect]
     Indication: ENDOCARDITIS STAPHYLOCOCCAL
     Dosage: 30 MG/KG, 1X/DAY
     Route: 041

REACTIONS (1)
  - STAPHYLOCOCCAL INFECTION [None]
